FAERS Safety Report 8029364-7 (Version None)
Quarter: 2012Q1

REPORT INFORMATION
  Report Type: 
  Country: None (occurrence: None)
  Receive Date: 20120106
  Receipt Date: 20120102
  Transmission Date: 20120608
  Serious: Yes (Life-Threatening, Hospitalization, Other)
  Sender: FDA-Public Use
  Company Number: FR-ASTRAZENECA-2012SE00437

PATIENT
  Age: 21508 Day
  Sex: Female

DRUGS (4)
  1. IRBESARTAN [Suspect]
     Indication: HYPERTENSION
     Route: 048
     Dates: start: 20110201, end: 20110801
  2. AVASTIN [Suspect]
     Indication: BREAST CANCER
     Route: 042
     Dates: start: 20100401, end: 20110725
  3. FASLODEX [Suspect]
     Indication: BREAST CANCER
     Route: 030
     Dates: start: 20100401, end: 20110801
  4. GEMZAR [Suspect]
     Indication: BREAST CANCER
     Route: 042
     Dates: start: 20100401, end: 20110815

REACTIONS (3)
  - RENAL FAILURE ACUTE [None]
  - THROMBOTIC MICROANGIOPATHY [None]
  - HYPERTENSION [None]
